FAERS Safety Report 23856974 (Version 2)
Quarter: 2024Q2

REPORT INFORMATION
  Report Type: Spontaneous
  Country: DE (occurrence: DE)
  Receive Date: 20240515
  Receipt Date: 20240523
  Transmission Date: 20240716
  Serious: Yes (Hospitalization, Other)
  Sender: FDA-Public Use
  Company Number: DE-MACLEODS PHARMA-MAC2024047232

PATIENT
  Age: 76 Year
  Sex: Female

DRUGS (3)
  1. TRIAMCINOLONE [Suspect]
     Active Substance: TRIAMCINOLONE
     Indication: Neuromyelitis optica spectrum disorder
     Dosage: EVERY 6 MONTHS, WITH A CUMULATIVE DOSE OF 80 MG OVER 2 DAYS
     Dates: start: 201906
  2. TRIAMCINOLONE [Suspect]
     Active Substance: TRIAMCINOLONE
     Dosage: FIFTH INJECTION, 17TH INTRATHECAL ADMINISTRATION OF TRIAMCINOLONE
     Dates: start: 20220421, end: 2023
  3. TRIAMCINOLONE [Suspect]
     Active Substance: TRIAMCINOLONE
     Dosage: 17TH INTRATHECAL

REACTIONS (2)
  - Pleocytosis [Recovered/Resolved]
  - Meningitis chemical [Recovered/Resolved]

NARRATIVE: CASE EVENT DATE: 20220422
